FAERS Safety Report 7730699-3 (Version None)
Quarter: 2011Q3

REPORT INFORMATION
  Report Type: 
  Country: None (occurrence: None)
  Receive Date: 20110906
  Receipt Date: 20110802
  Transmission Date: 20111222
  Serious: Yes (Other)
  Sender: FDA-Public Use
  Company Number: CA-GLAXOSMITHKLINE-A0939328A

PATIENT
  Sex: Female
  Weight: 62 kg

DRUGS (7)
  1. ADVAIR DISKUS 100/50 [Suspect]
     Indication: ASTHMA
     Dosage: 1PUFF TWICE PER DAY
     Route: 055
     Dates: start: 20110712, end: 20110810
  2. VENTOLIN HFA [Suspect]
     Indication: ASTHMA
     Route: 065
  3. HYDROCHLOROTHIAZIDE [Concomitant]
     Dosage: 25U PER DAY
  4. BLOOD PRESSURE MEDICATION [Concomitant]
     Indication: HYPERTENSION
  5. DIOVAN [Concomitant]
     Dosage: 80U PER DAY
  6. SYMBICORT [Suspect]
     Indication: ASTHMA
     Dosage: 1PUFF TWICE PER DAY
     Route: 065
  7. CHOLESTEROL REDUCING AGENT NAME NOT KNOWN [Concomitant]
     Indication: BLOOD CHOLESTEROL INCREASED

REACTIONS (7)
  - ORAL DISCOMFORT [None]
  - BURNING SENSATION [None]
  - PALATAL DISORDER [None]
  - MOUTH ULCERATION [None]
  - SKIN LESION [None]
  - ASTHMA [None]
  - CANDIDIASIS [None]
